FAERS Safety Report 10275321 (Version 1)
Quarter: 2014Q3

REPORT INFORMATION
  Report Type: Spontaneous
  Country: DK (occurrence: DK)
  Receive Date: 20140703
  Receipt Date: 20140703
  Transmission Date: 20150326
  Serious: Yes (Other)
  Sender: FDA-Public Use
  Company Number: DK-009507513-1406DNK014135

PATIENT
  Age: 67 Year
  Sex: Female

DRUGS (3)
  1. FOSAMAX [Suspect]
     Active Substance: ALENDRONATE SODIUM
     Indication: OSTEOPOROSIS
     Dosage: 70 MG, QD, STRENGTH 70 MG
     Route: 048
     Dates: start: 20060615
  2. PROLIA [Suspect]
     Active Substance: DENOSUMAB
     Indication: OSTEOPOROSIS
     Dosage: STRENGTH 60 MG/ML
     Dates: start: 20140215
  3. BONVIVA [Suspect]
     Active Substance: IBANDRONATE SODIUM
     Indication: OSTEOPOROSIS
     Dosage: STRENGTH 150 MG, MONTHLY
     Dates: start: 20100615

REACTIONS (6)
  - Impaired healing [Not Recovered/Not Resolved]
  - Pain [Not Recovered/Not Resolved]
  - Oral cavity fistula [Not Recovered/Not Resolved]
  - Tooth extraction [Recovered/Resolved]
  - Osteonecrosis of jaw [Not Recovered/Not Resolved]
  - Swelling [Not Recovered/Not Resolved]

NARRATIVE: CASE EVENT DATE: 20130624
